FAERS Safety Report 18049044 (Version 1)
Quarter: 2020Q3

REPORT INFORMATION
  Report Type: Spontaneous
  Country: US (occurrence: US)
  Receive Date: 20200721
  Receipt Date: 20200721
  Transmission Date: 20201103
  Serious: Yes (Hospitalization)
  Sender: FDA-Public Use
  Company Number: None

PATIENT
  Age: 39 Year
  Sex: Male
  Weight: 128 kg

DRUGS (2)
  1. ETOPOSIDE (VP?16) [Suspect]
     Active Substance: ETOPOSIDE
     Dates: end: 20200620
  2. CARBOPLATIN (241240) [Suspect]
     Active Substance: CARBOPLATIN
     Dates: end: 20200620

REACTIONS (6)
  - Respiratory failure [None]
  - Lung infiltration [None]
  - Sepsis [None]
  - Fibrosis [None]
  - Procalcitonin increased [None]
  - C-reactive protein increased [None]

NARRATIVE: CASE EVENT DATE: 20200713
